FAERS Safety Report 10921134 (Version 1)
Quarter: 2015Q1

REPORT INFORMATION
  Report Type: Spontaneous
  Country: GB (occurrence: GB)
  Receive Date: 20150317
  Receipt Date: 20150317
  Transmission Date: 20150721
  Serious: Yes (Other)
  Sender: FDA-Public Use
  Company Number: GB-PFIZER INC-2015094465

PATIENT
  Age: 47 Year
  Sex: Male

DRUGS (3)
  1. ATENOLOL. [Suspect]
     Active Substance: ATENOLOL
     Dosage: UNK
  2. CLOZARIL [Suspect]
     Active Substance: CLOZAPINE
     Dosage: 12.5 MG, UNK
     Route: 048
     Dates: start: 20150217
  3. CLOZARIL [Suspect]
     Active Substance: CLOZAPINE
     Indication: SCHIZOPHRENIA
     Dosage: 200 MG, 2X/DAY
     Route: 048
     Dates: start: 20070521

REACTIONS (15)
  - Lower respiratory tract infection [Unknown]
  - Depressed level of consciousness [Unknown]
  - Alanine aminotransferase increased [Unknown]
  - Neutrophil count increased [Recovered/Resolved]
  - Coma scale abnormal [Unknown]
  - Confusional state [Unknown]
  - Bradycardia [Recovering/Resolving]
  - Somnolence [Unknown]
  - Mental impairment [Unknown]
  - Epilepsy [Unknown]
  - Blood creatine phosphokinase increased [Unknown]
  - White blood cell count increased [Recovered/Resolved]
  - Neuroleptic malignant syndrome [Unknown]
  - Polycythaemia [Unknown]
  - Disorientation [Unknown]

NARRATIVE: CASE EVENT DATE: 20141210
